FAERS Safety Report 4786596-9 (Version None)
Quarter: 2005Q3

REPORT INFORMATION
  Report Type: 
  Country: None (occurrence: None)
  Receive Date: 20050927
  Receipt Date: 20050629
  Transmission Date: 20060218
  Serious: No
  Sender: FDA-Public Use
  Company Number: USA0506101646

PATIENT
  Age: 17 Year
  Sex: Female

DRUGS (2)
  1. STRATTERA [Suspect]
  2. ZOLOFT [Concomitant]

REACTIONS (2)
  - DEPRESSION [None]
  - SUICIDAL IDEATION [None]
